FAERS Safety Report 5337070-2 (Version None)
Quarter: 2007Q2

REPORT INFORMATION
  Report Type: 
  Country: None (occurrence: None)
  Receive Date: 20070529
  Receipt Date: 20070524
  Transmission Date: 20071010
  Serious: Yes (Other)
  Sender: FDA-Public Use
  Company Number: CH-BRISTOL-MYERS SQUIBB COMPANY-13765144

PATIENT
  Age: 51 Year
  Sex: Male

DRUGS (8)
  1. ATAZANAVIR SULFATE [Suspect]
     Indication: HIV INFECTION
  2. TENOFOVIR [Suspect]
     Indication: HIV INFECTION
  3. RITONAVIR [Suspect]
  4. LAMIVUDINE [Concomitant]
  5. AMOXICILLIN + CLAVULANATE POTASSIUM [Concomitant]
  6. OXAZEPAM [Concomitant]
  7. METHADONE HCL [Concomitant]
  8. ESOMEPRAZOLE MAGNESIUM [Concomitant]

REACTIONS (2)
  - NEPHRITIS INTERSTITIAL [None]
  - RENAL FAILURE ACUTE [None]
